FAERS Safety Report 5253336-9 (Version None)
Quarter: 2007Q1

REPORT INFORMATION
  Report Type: 
  Country: None (occurrence: None)
  Receive Date: 20070301
  Receipt Date: 20070219
  Transmission Date: 20070707
  Serious: Yes (Other)
  Sender: FDA-Public Use
  Company Number: ZA-ROCHE-483513

PATIENT
  Age: 37 Year
  Sex: Female

DRUGS (2)
  1. ROACCUTANE [Suspect]
     Indication: ACNE
     Route: 048
     Dates: start: 20070131, end: 20070203
  2. CLOMID [Concomitant]
     Route: 048
     Dates: start: 20061215, end: 20061215

REACTIONS (2)
  - NO ADVERSE EFFECT [None]
  - PREGNANCY [None]
